FAERS Safety Report 9248379 (Version 1)
Quarter: 2013Q1

REPORT INFORMATION
  Report Type: Spontaneous
  Country: US (occurrence: None)
  Receive Date: 20130305
  Receipt Date: 20130305
  Transmission Date: 20140127
  Serious: Yes (Other)
  Sender: FDA-Public Use
  Company Number: 163-21880-12092370

PATIENT
  Age: 77 Year
  Sex: Male

DRUGS (2)
  1. REVLIMID (LENALIDOMIDE) [Suspect]
     Indication: PLASMA CELL MYELOMA
     Route: 048
     Dates: start: 20120825
  2. VELCADE (BORTEZOMIB) [Concomitant]

REACTIONS (5)
  - Arthritis [None]
  - Arthralgia [None]
  - Gait disturbance [None]
  - Oedema peripheral [None]
  - Fatigue [None]
